FAERS Safety Report 6235379-1 (Version None)
Quarter: 2009Q2

REPORT INFORMATION
  Report Type: 
  Country: None (occurrence: None)
  Receive Date: 20090618
  Receipt Date: 20080606
  Transmission Date: 20091009
  Serious: No
  Sender: FDA-Public Use
  Company Number: US-ASTRAZENECA-2008UW11441

PATIENT
  Age: 63 Year
  Sex: Male

DRUGS (3)
  1. ENTOCORT EC [Suspect]
     Indication: COLITIS ULCERATIVE
     Dosage: 1 CAPSULE TID
     Route: 048
     Dates: start: 20080510
  2. PENTASA [Concomitant]
  3. MERCAPTOPURINE [Concomitant]

REACTIONS (3)
  - ANOREXIA [None]
  - FATIGUE [None]
  - WEIGHT DECREASED [None]
